FAERS Safety Report 9227465 (Version 1)
Quarter: 2013Q2

REPORT INFORMATION
  Report Type: Spontaneous
  Country: US (occurrence: None)
  Receive Date: 20130411
  Receipt Date: 20130411
  Transmission Date: 20140414
  Serious: Yes (Hospitalization)
  Sender: FDA-Public Use
  Company Number: None

PATIENT
  Age: 72 Year
  Sex: Male
  Weight: 81 kg

DRUGS (5)
  1. FENTANYL [Suspect]
     Indication: PAIN
     Dosage: 50 MCG,Q72HR PO
     Route: 048
  2. HYDROCODONE/APAP [Suspect]
     Indication: PAIN
     Dosage: 7.5/325MG Q6HR PRN PAIN PO
     Route: 048
  3. GABAPENTIN [Concomitant]
  4. DONEPEZIL [Concomitant]
  5. NORTRIPTYLYNE [Concomitant]

REACTIONS (2)
  - Overdose [None]
  - Unresponsive to stimuli [None]
